FAERS Safety Report 7151881-2 (Version None)
Quarter: 2010Q4

REPORT INFORMATION
  Report Type: 
  Country: None (occurrence: None)
  Receive Date: 20101210
  Receipt Date: 20101201
  Transmission Date: 20110411
  Serious: Yes (Hospitalization, Other)
  Sender: FDA-Public Use
  Company Number: US-ABBOTT-10P-163-0688881-00

PATIENT
  Age: 55 Year
  Sex: Female

DRUGS (2)
  1. DEPAKOTE [Suspect]
     Indication: CONVULSION
  2. AVONEX [Suspect]
     Indication: MULTIPLE SCLEROSIS
     Route: 030
     Dates: start: 20081217, end: 20100809

REACTIONS (4)
  - CHEMICAL POISONING [None]
  - CONVULSION [None]
  - HALLUCINATION [None]
  - MULTIPLE SCLEROSIS RELAPSE [None]
